FAERS Safety Report 25488543 (Version 1)
Quarter: 2025Q2

REPORT INFORMATION
  Report Type: Spontaneous
  Country: KR (occurrence: KR)
  Receive Date: 20250627
  Receipt Date: 20250627
  Transmission Date: 20250717
  Serious: Yes (Hospitalization, Other)
  Sender: BAYER HEALTHCARE PHARMACEUTICALS INC.
  Company Number: KR-BAYER-2024A131267

PATIENT
  Age: 54 Year
  Sex: Female

DRUGS (1)
  1. LEVONORGESTREL [Suspect]
     Active Substance: LEVONORGESTREL
     Indication: Contraception
     Route: 015
     Dates: start: 2000, end: 2022

REACTIONS (5)
  - Uterine perforation [None]
  - Large intestine perforation [None]
  - Abdominal adhesions [None]
  - Haematochezia [None]
  - Abdominal pain [None]

NARRATIVE: CASE EVENT DATE: 20220101
